FAERS Safety Report 10170142 (Version 1)
Quarter: 2014Q2

REPORT INFORMATION
  Report Type: Spontaneous
  Country: GR (occurrence: GR)
  Receive Date: 20140513
  Receipt Date: 20140513
  Transmission Date: 20141212
  Serious: Yes (Death, Hospitalization)
  Sender: FDA-Public Use
  Company Number: GR-GLAXOSMITHKLINE-B0992870A

PATIENT
  Age: 89 Year
  Sex: Male

DRUGS (1)
  1. REVOLADE [Suspect]
     Indication: IMMUNE THROMBOCYTOPENIC PURPURA
     Dosage: 50MG PER DAY
     Route: 065
     Dates: start: 201402

REACTIONS (4)
  - Atrial fibrillation [Unknown]
  - Death [Fatal]
  - Headache [Unknown]
  - Platelet count increased [Unknown]
